FAERS Safety Report 6984978-8 (Version None)
Quarter: 2010Q3

REPORT INFORMATION
  Report Type: 
  Country: None (occurrence: None)
  Receive Date: 20100915
  Receipt Date: 20100616
  Transmission Date: 20110219
  Serious: Yes (Death, Other)
  Sender: FDA-Public Use
  Company Number: PHHY2010ZA59758

PATIENT
  Sex: Female

DRUGS (1)
  1. GLEEVEC [Suspect]
     Dosage: 400 MG
     Dates: start: 20090422

REACTIONS (2)
  - DEATH [None]
  - GENERAL PHYSICAL HEALTH DETERIORATION [None]
